FAERS Safety Report 4887648-5 (Version None)
Quarter: 2006Q1

REPORT INFORMATION
  Report Type: 
  Country: None (occurrence: None)
  Receive Date: 20060123
  Receipt Date: 20051220
  Transmission Date: 20060701
  Serious: Yes (Hospitalization)
  Sender: FDA-Public Use
  Company Number: FR-AVENTIS-200514254FR

PATIENT
  Age: 65 Year
  Sex: Male

DRUGS (6)
  1. DI-ANTALVIC [Suspect]
     Route: 048
  2. AUGMENTIN '125' [Suspect]
     Dates: start: 20051028, end: 20051101
  3. LOVENOX [Suspect]
     Route: 058
     Dates: start: 20051024, end: 20051120
  4. VALIUM [Concomitant]
     Indication: DEPRESSION
     Route: 048
  5. SERESTA [Concomitant]
     Indication: DEPRESSION
     Route: 048
  6. LAROXYL [Concomitant]
     Indication: DEPRESSION
     Route: 048

REACTIONS (5)
  - ASTHENIA [None]
  - ERYTHEMA MULTIFORME [None]
  - LYMPHADENOPATHY [None]
  - NAUSEA [None]
  - PYREXIA [None]
